FAERS Safety Report 11189094 (Version 1)
Quarter: 2015Q2

REPORT INFORMATION
  Report Type: Spontaneous
  Country: BR (occurrence: BR)
  Receive Date: 20150615
  Receipt Date: 20150615
  Transmission Date: 20150821
  Serious: Yes (Other)
  Sender: FDA-Public Use
  Company Number: BR-AMGEN-BRASP2015057946

PATIENT
  Age: 72 Year
  Sex: Female
  Weight: 50 kg

DRUGS (6)
  1. PURAN [Concomitant]
     Active Substance: LEVOTHYROXINE SODIUM
     Indication: HYPOTHYROIDISM
     Dosage: UNK (STRENGTH 50 MG), 2X/DAY
  2. SELOZOK [Concomitant]
     Active Substance: METOPROLOL SUCCINATE
     Indication: ARRHYTHMIA
     Dosage: UNK (STRENGTH 50 MG)
  3. ENBREL [Suspect]
     Active Substance: ETANERCEPT
     Indication: RHEUMATOID ARTHRITIS
     Dosage: 50 MG, 1X/WEEK
     Route: 058
     Dates: start: 20121010, end: 20141210
  4. XARELTO [Concomitant]
     Active Substance: RIVAROXABAN
     Dosage: UNK (STRENGTH 10 MG)
  5. IBUPROFEN. [Concomitant]
     Active Substance: IBUPROFEN
     Dosage: 600 MG, 1X/WEEK
  6. CIPROFLOXACIN. [Concomitant]
     Active Substance: CIPROFLOXACIN
     Dosage: UNK (STRENGTH 500 MG)

REACTIONS (3)
  - Femur fracture [Unknown]
  - Renal disorder [Unknown]
  - Fall [Unknown]

NARRATIVE: CASE EVENT DATE: 201412
